FAERS Safety Report 9391423 (Version 1)
Quarter: 2013Q3

REPORT INFORMATION
  Report Type: Other
  Country: GB (occurrence: GB)
  Receive Date: 20130709
  Receipt Date: 20130709
  Transmission Date: 20140515
  Serious: Yes (Life-Threatening)
  Sender: FDA-Public Use
  Company Number: GB-ACTAVIS-2013-11719

PATIENT
  Age: 46 Year
  Sex: Female

DRUGS (6)
  1. PARACETAMOL (UNKNOWN) [Suspect]
     Indication: PAIN
     Dosage: 1 G, UNKNOWN
     Route: 048
  2. OMEPRAZOLE [Concomitant]
     Indication: GASTROOESOPHAGEAL REFLUX DISEASE
     Dosage: 20 MG, UNKNOWN
     Route: 065
  3. CANDESARTAN [Concomitant]
     Indication: HYPERTENSION
     Dosage: 4 MG, UNKNOWN
     Route: 065
  4. FERROUS FUMARATE [Concomitant]
     Indication: ANAEMIA
     Dosage: 210 MG, UNKNOWN
     Route: 065
  5. FLUOXETINE [Concomitant]
     Indication: DEPRESSION
     Dosage: 20 MG, UNKNOWN
     Route: 065
  6. METFORMIN [Concomitant]
     Indication: DIABETES MELLITUS
     Dosage: 1 G, BID
     Route: 065

REACTIONS (1)
  - Hypoglycaemia [Unknown]
